FAERS Safety Report 6998656-2 (Version None)
Quarter: 2010Q3

REPORT INFORMATION
  Report Type: 
  Country: None (occurrence: None)
  Receive Date: 20100920
  Receipt Date: 20090728
  Transmission Date: 20110219
  Serious: Yes (Hospitalization)
  Sender: FDA-Public Use
  Company Number: US-ASTRAZENECA-2009SE06429

PATIENT
  Age: 27 Year
  Sex: Male

DRUGS (4)
  1. SEROQUEL [Suspect]
     Route: 048
     Dates: end: 20090716
  2. SEROQUEL [Suspect]
     Route: 048
     Dates: start: 20090716
  3. DEPAKOTE [Concomitant]
     Dosage: TWO TIMES A DAY
  4. EFFEXOR XR [Concomitant]

REACTIONS (1)
  - PRIAPISM [None]
